FAERS Safety Report 6694970-9 (Version None)
Quarter: 2010Q2

REPORT INFORMATION
  Report Type: 
  Country: None (occurrence: None)
  Receive Date: 20100423
  Receipt Date: 20100416
  Transmission Date: 20101027
  Serious: Yes (Hospitalization)
  Sender: FDA-Public Use
  Company Number: IT-AMGEN-KDC388299

PATIENT
  Sex: Male
  Weight: 94 kg

DRUGS (5)
  1. ROMIPLOSTIM [Suspect]
     Indication: IDIOPATHIC THROMBOCYTOPENIC PURPURA
     Route: 058
     Dates: start: 20090812, end: 20091126
  2. PREDNISONE [Concomitant]
  3. LAMIVUDINE [Concomitant]
  4. ALDACTONE [Concomitant]
  5. LORAZEPAM [Concomitant]

REACTIONS (1)
  - PULMONARY EMBOLISM [None]
